FAERS Safety Report 17465284 (Version 3)
Quarter: 2022Q4

REPORT INFORMATION
  Report Type: Spontaneous
  Country: DE (occurrence: DE)
  Receive Date: 20200227
  Receipt Date: 20221020
  Transmission Date: 20230112
  Serious: Yes (Hospitalization, Other)
  Sender: FDA-Public Use
  Company Number: None

PATIENT
  Age: 89 Year
  Sex: Female

DRUGS (7)
  1. RAMIPRIL [Suspect]
     Active Substance: RAMIPRIL
     Dosage: 1.25 MG, QD (MEDIKATIONSFEHLER)
     Route: 048
  2. RISPERIDONE [Suspect]
     Active Substance: RISPERIDONE
     Dosage: 1 MG, QD (MEDIKATIONSFEHLER)
     Route: 048
  3. TORSEMIDE [Suspect]
     Active Substance: TORSEMIDE
     Dosage: 10 MG, BID (MEDIKATIONSFEHLER)
     Route: 048
  4. POLYETHYLENE GLYCOL 4000 [Suspect]
     Active Substance: POLYETHYLENE GLYCOL 4000
     Dosage: 10 G, QD (MEDIKATIONSFEHLER)
     Route: 048
  5. NALOXONE [Suspect]
     Active Substance: NALOXONE
     Dosage: 4|50 MG, 1-1-1-0 (MEDIKATIONSFEHLER)
     Route: 048
  6. DABIGATRAN [Concomitant]
     Active Substance: DABIGATRAN
     Dosage: 110 MG, QD
     Route: 048
  7. CHOLECALCIFEROL [Concomitant]
     Active Substance: CHOLECALCIFEROL
     Dosage: 1000 IE, 1-0-0-0
     Route: 048

REACTIONS (11)
  - Orthostatic intolerance [Unknown]
  - Dehydration [Unknown]
  - Sacral pain [Unknown]
  - Pain [Unknown]
  - Dizziness [Unknown]
  - Fall [Unknown]
  - Headache [Unknown]
  - Product monitoring error [Unknown]
  - Product prescribing error [Unknown]
  - Glomerular filtration rate decreased [Unknown]
  - C-reactive protein increased [Unknown]

NARRATIVE: CASE EVENT DATE: 20190808
